FAERS Safety Report 4917006-6 (Version None)
Quarter: 2006Q1

REPORT INFORMATION
  Report Type: 
  Country: None (occurrence: None)
  Receive Date: 20060221
  Receipt Date: 20050124
  Transmission Date: 20060701
  Serious: Yes (Hospitalization, Disabling)
  Sender: FDA-Public Use
  Company Number: CH-AMGEN-UK109271

PATIENT
  Sex: Female
  Weight: 52 kg

DRUGS (1)
  1. NEUPOGEN [Suspect]
     Indication: AGRANULOCYTOSIS
     Route: 058
     Dates: start: 19970101

REACTIONS (24)
  - AGRANULOCYTOSIS [None]
  - ANAL FISSURE [None]
  - ANTIBODY TEST POSITIVE [None]
  - AUTOIMMUNE DISORDER [None]
  - BONE MARROW FAILURE [None]
  - C-REACTIVE PROTEIN INCREASED [None]
  - DISEASE RECURRENCE [None]
  - EPSTEIN-BARR VIRUS INFECTION [None]
  - GENERAL PHYSICAL HEALTH DETERIORATION [None]
  - HYPERGAMMAGLOBULINAEMIA [None]
  - INFECTION [None]
  - IRON DEFICIENCY [None]
  - LYMPHOPENIA [None]
  - MALAISE [None]
  - NEUTROPENIA [None]
  - NORMOCHROMIC NORMOCYTIC ANAEMIA [None]
  - PYREXIA [None]
  - RECTAL FISSURE [None]
  - SALPINGITIS [None]
  - SINUSITIS [None]
  - SPLENOMEGALY [None]
  - TONSILLITIS [None]
  - TRACHEOBRONCHITIS [None]
  - WHITE BLOOD CELL COUNT INCREASED [None]
